FAERS Safety Report 4364084-1 (Version None)
Quarter: 2004Q2

REPORT INFORMATION
  Report Type: 
  Country: None (occurrence: None)
  Receive Date: 20040519
  Receipt Date: 20040506
  Transmission Date: 20050107
  Serious: Yes (Life-Threatening, Hospitalization, Disabling)
  Sender: FDA-Public Use
  Company Number: 2004GB00901

PATIENT
  Age: 46 Year
  Sex: Female
  Weight: 64 kg

DRUGS (4)
  1. GEFITINIB [Suspect]
     Indication: NON-SMALL CELL LUNG CANCER
     Dosage: 250 MG QD PO
     Route: 048
     Dates: start: 20040304, end: 20040310
  2. PAROXETINE HCL [Concomitant]
  3. MORPHINE SULFATE [Concomitant]
  4. ORAMORPH SR [Concomitant]

REACTIONS (2)
  - LUNG CANCER METASTATIC [None]
  - RECTAL HAEMORRHAGE [None]
